FAERS Safety Report 6023319-X (Version None)
Quarter: 2008Q4

REPORT INFORMATION
  Report Type: 
  Country: None (occurrence: None)
  Receive Date: 20081230
  Receipt Date: 20081222
  Transmission Date: 20090506
  Serious: Yes (Hospitalization)
  Sender: FDA-Public Use
  Company Number: ES-ELI_LILLY_AND_COMPANY-ES200812005491

PATIENT
  Age: 81 Year
  Sex: Female

DRUGS (2)
  1. FORTEO [Suspect]
     Indication: OSTEOPOROSIS
     Dosage: 20 UG, UNK
     Route: 058
     Dates: start: 20080101
  2. URBASON /00049601/ [Concomitant]

REACTIONS (6)
  - BLOOD GLUCOSE INCREASED [None]
  - OXYGEN SATURATION DECREASED [None]
  - PAIN [None]
  - SYNCOPE [None]
  - TACHYCARDIA [None]
  - URINARY TRACT INFECTION [None]
